FAERS Safety Report 9393081 (Version 2)
Quarter: 2013Q4

REPORT INFORMATION
  Report Type: Report from Study
  Country: JP (occurrence: JP)
  Receive Date: 20130710
  Receipt Date: 20131106
  Transmission Date: 20140711
  Serious: Yes (Other)
  Sender: FDA-Public Use
  Company Number: JP-VERTEX PHARMACEUTICALS INC-2013-007785

PATIENT
  Age: 50 Year
  Sex: Female

DRUGS (12)
  1. VX-950 (TELAPREVIR) [Suspect]
     Indication: CHRONIC HEPATITIS C
     Dosage: 1500 MG, QD
     Route: 048
     Dates: start: 20120829, end: 20121121
  2. REBETOL [Suspect]
     Indication: CHRONIC HEPATITIS C
     Dosage: 600 MG, QD
     Route: 048
     Dates: start: 20120829, end: 20121002
  3. REBETOL [Suspect]
     Dosage: 400 MG, QD
     Route: 048
     Dates: start: 20121003, end: 20121031
  4. REBETOL [Suspect]
     Dosage: 200 MG, QD
     Route: 048
     Dates: start: 20121101, end: 20121121
  5. REBETOL [Suspect]
     Dosage: 400 MG, QD
     Route: 048
     Dates: start: 20121122, end: 20121205
  6. PEGINTRON [Suspect]
     Indication: CHRONIC HEPATITIS C
     Dosage: 1.5 ?G/KG, QW
     Route: 058
     Dates: start: 20120829, end: 20121128
  7. LOXONIN [Suspect]
     Indication: PROPHYLAXIS
     Dosage: 120 MG, QD
     Route: 048
     Dates: start: 20120830
  8. MUCOSTA [Suspect]
     Indication: PROPHYLAXIS
     Dosage: 200 MG, QD
     Route: 048
     Dates: start: 20120830
  9. GASMOTIN [Suspect]
     Indication: ADVERSE EVENT
     Dosage: 15 MG, QD
     Route: 048
     Dates: start: 20120901
  10. ALOSITOL [Suspect]
     Indication: ADVERSE EVENT
     Dosage: 100 MG, QD
     Route: 048
     Dates: start: 20120902
  11. PARIET [Suspect]
     Indication: ADVERSE EVENT
     Dosage: 20 MG, QD
     Route: 048
     Dates: start: 20120911
  12. URSO [Concomitant]
     Dosage: 600 MG, QD
     Route: 048
     Dates: end: 20120911

REACTIONS (1)
  - White blood cell count decreased [Recovered/Resolved]
